FAERS Safety Report 6966170-6 (Version None)
Quarter: 2010Q3

REPORT INFORMATION
  Report Type: 
  Country: None (occurrence: None)
  Receive Date: 20100903
  Receipt Date: 20100826
  Transmission Date: 20110219
  Serious: Yes (Hospitalization)
  Sender: FDA-Public Use
  Company Number: GXKR2010JP05773

PATIENT
  Age: 74 Year
  Sex: Female
  Weight: 39.4 kg

DRUGS (4)
  1. CARBAMAZEPINE [Suspect]
     Indication: PAIN IN EXTREMITY
     Route: 065
  2. MEXILETINE (NGX) [Suspect]
     Indication: PAIN IN EXTREMITY
     Route: 065
  3. GEFITINIB [Concomitant]
     Indication: ADENOCARCINOMA
     Dosage: UNK
     Route: 065
     Dates: start: 20070101
  4. GEFITINIB [Concomitant]
     Indication: METASTASES TO BONE

REACTIONS (12)
  - COLONOSCOPY [None]
  - DIARRHOEA [None]
  - DRUG RASH WITH EOSINOPHILIA AND SYSTEMIC SYMPTOMS [None]
  - EOSINOPHILIA [None]
  - ERYTHEMA [None]
  - HEPATIC FAILURE [None]
  - HYPOXIA [None]
  - LARGE INTESTINAL ULCER [None]
  - OEDEMA PERIPHERAL [None]
  - PNEUMONIA CYTOMEGALOVIRAL [None]
  - PYREXIA [None]
  - RASH [None]
